FAERS Safety Report 15700912 (Version 1)
Quarter: 2018Q4

REPORT INFORMATION
  Report Type: Report from Study
  Country: IT (occurrence: IT)
  Receive Date: 20181207
  Receipt Date: 20181207
  Transmission Date: 20190205
  Serious: Yes (Hospitalization)
  Sender: FDA-Public Use
  Company Number: IT-BAYER-2018-223302

PATIENT
  Age: 76 Year
  Sex: Male

DRUGS (7)
  1. OMEPRAZEN [OMEPRAZOLE] [Concomitant]
  2. CARDIOASPIRIN 100 MG GASTRO-RESISTANT TABLETS [Suspect]
     Active Substance: ASPIRIN
     Indication: CORONARY ARTERY DISEASE
     Dosage: 100 MG
     Route: 048
     Dates: start: 20170101
  3. NORVASC [Concomitant]
     Active Substance: AMLODIPINE BESYLATE
  4. OLPREZIDE [Concomitant]
     Active Substance: HYDROCHLOROTHIAZIDE\OLMESARTAN MEDOXOMIL
  5. BRILIQUE [Suspect]
     Active Substance: TICAGRELOR
     Indication: CORONARY ARTERY DISEASE
     Dosage: 180 MG, UNK
     Route: 048
     Dates: start: 20170101, end: 20181110
  6. TOTALIP [Concomitant]
     Active Substance: ATORVASTATIN
  7. SYNJARDY [Concomitant]
     Active Substance: EMPAGLIFLOZIN\METFORMIN HYDROCHLORIDE

REACTIONS (4)
  - Subdural haematoma [None]
  - Status epilepticus [Recovering/Resolving]
  - Fall [None]
  - Loss of consciousness [Recovering/Resolving]

NARRATIVE: CASE EVENT DATE: 20181110
